FAERS Safety Report 23727384 (Version 1)
Quarter: 2024Q2

REPORT INFORMATION
  Report Type: Spontaneous
  Country: IN (occurrence: IN)
  Receive Date: 20240410
  Receipt Date: 20240410
  Transmission Date: 20240716
  Serious: Yes (Hospitalization, Other)
  Sender: FDA-Public Use
  Company Number: IN-MYLANLABS-2024M1031137

PATIENT
  Sex: Male

DRUGS (2)
  1. TACROLIMUS [Suspect]
     Active Substance: TACROLIMUS
     Indication: Immunosuppressant drug therapy
     Dosage: 0.5 MILLIGRAM, BID (ON DAY 1)
     Route: 065
  2. TACROLIMUS [Suspect]
     Active Substance: TACROLIMUS
     Dosage: 1.5 MILLIGRAM (THEN DOSE WAS ESCALATED TO 1.5 MG)
     Route: 065

REACTIONS (4)
  - Osmotic demyelination syndrome [Unknown]
  - Drug ineffective [Unknown]
  - Tremor [Unknown]
  - Dysarthria [Unknown]
